FAERS Safety Report 14283500 (Version 4)
Quarter: 2018Q2

REPORT INFORMATION
  Report Type: Spontaneous
  Country: FR (occurrence: FR)
  Receive Date: 20171214
  Receipt Date: 20180503
  Transmission Date: 20180711
  Serious: Yes (Hospitalization, Other)
  Sender: FDA-Public Use
  Company Number: FR-AUROBINDO-AUR-APL-2017-45121

PATIENT
  Age: 27 Year
  Sex: Male
  Weight: 72 kg

DRUGS (10)
  1. TAVANIC [Suspect]
     Active Substance: LEVOFLOXACIN
     Indication: PYREXIA
     Dosage: ()
     Route: 048
     Dates: start: 20170804, end: 20170810
  2. NATULAN [Suspect]
     Active Substance: PROCARBAZINE HYDROCHLORIDE
     Indication: GLIONEURONAL TUMOUR
     Dosage: UNK ()
     Route: 048
     Dates: start: 20170308, end: 20170801
  3. VINCRISTINE TEVA [Suspect]
     Active Substance: VINCRISTINE
     Indication: GLIONEURONAL TUMOUR
     Dosage: 2 MG DAILY ()
     Route: 042
     Dates: start: 20170308, end: 20170719
  4. TEMODAL [Concomitant]
     Active Substance: TEMOZOLOMIDE
     Dosage: UNK ()
     Route: 065
  5. TEMODAL [Concomitant]
     Active Substance: TEMOZOLOMIDE
     Indication: GLIONEURONAL TUMOUR
     Dosage: UNK ()
     Route: 065
     Dates: end: 201301
  6. KEPPRA [Suspect]
     Active Substance: LEVETIRACETAM
     Route: 048
  7. PARACETAMOL [Suspect]
     Active Substance: ACETAMINOPHEN
     Indication: PYREXIA
     Dosage: 4 G DAILY ()
     Route: 042
     Dates: start: 20170731, end: 20170807
  8. AUGMENTIN [Suspect]
     Active Substance: AMOXICILLIN\CLAVULANATE POTASSIUM
     Indication: PYREXIA
     Dosage: 3 G, DAILY
     Route: 042
     Dates: start: 20170731, end: 20170810
  9. BELUSTINE [Suspect]
     Active Substance: LOMUSTINE
     Indication: GLIONEURONAL TUMOUR
     Dosage: UNK ()
     Route: 048
     Dates: start: 20170301, end: 20170712
  10. KEPPRA [Suspect]
     Active Substance: LEVETIRACETAM
     Indication: EPILEPSY
     Dosage: 750 MG, 2X/DAY (BID)
     Route: 048

REACTIONS (2)
  - Liver injury [Recovering/Resolving]
  - Neutropenia [Unknown]

NARRATIVE: CASE EVENT DATE: 20170807
